FAERS Safety Report 7025162-1 (Version None)
Quarter: 2010Q4

REPORT INFORMATION
  Report Type: 
  Country: None (occurrence: None)
  Receive Date: 20101001
  Receipt Date: 20100921
  Transmission Date: 20110411
  Serious: Yes (Hospitalization)
  Sender: FDA-Public Use
  Company Number: US-GENENTECH-306972

PATIENT
  Sex: Female

DRUGS (3)
  1. NUTROPIN AQ [Suspect]
     Indication: GROWTH HORMONE DEFICIENCY
     Dosage: 4.4 MG, X1
     Route: 058
     Dates: start: 20100826
  2. NUTROPIN AQ [Suspect]
     Dosage: 0.5 MG, QD
     Route: 058
  3. AUGMENTIN '125' [Concomitant]
     Indication: PRODUCT USED FOR UNKNOWN INDICATION
     Dosage: 5 ML, UNK
     Dates: start: 20100820, end: 20100830

REACTIONS (1)
  - ACCIDENTAL OVERDOSE [None]
